FAERS Safety Report 20387290 (Version 2)
Quarter: 2022Q2

REPORT INFORMATION
  Report Type: Other
  Country: US (occurrence: US)
  Receive Date: 20220127
  Receipt Date: 20220414
  Transmission Date: 20220720
  Serious: Yes (Hospitalization, Other)
  Sender: FDA-Public Use
  Company Number: US-Covis Pharma GmbH-2022COV00141

PATIENT
  Age: 31 Year
  Sex: Female
  Weight: 86.260 kg

DRUGS (1)
  1. MAKENA [Suspect]
     Active Substance: HYDROXYPROGESTERONE CAPROATE
     Indication: Premature delivery
     Route: 058
     Dates: start: 20210107

REACTIONS (1)
  - Cervical incompetence [Unknown]

NARRATIVE: CASE EVENT DATE: 20220107
